FAERS Safety Report 18818872 (Version 2)
Quarter: 2021Q1

REPORT INFORMATION
  Report Type: Spontaneous
  Country: IT (occurrence: IT)
  Receive Date: 20210202
  Receipt Date: 20210222
  Transmission Date: 20210419
  Serious: Yes (Other)
  Sender: FDA-Public Use
  Company Number: IT-SUN PHARMACEUTICAL INDUSTRIES LTD-2021RR-278681

PATIENT
  Age: 86 Year
  Sex: Female

DRUGS (4)
  1. BASSADO [DOXYCYCLINE] [Suspect]
     Active Substance: DOXYCYCLINE
     Indication: COVID-19
     Dosage: UNK
     Route: 065
  2. PLAQUENIL [Suspect]
     Active Substance: HYDROXYCHLOROQUINE SULFATE
     Indication: COVID-19
     Dosage: UNK
     Route: 065
  3. ENOXAPARINA ROVI (ROVI) 4000UI [Suspect]
     Active Substance: ENOXAPARIN SODIUM
     Indication: ANTICOAGULANT THERAPY
     Dosage: 6000 UNIT, BID
     Route: 065
  4. CEFTRIAXONE 2000 MG (MYLAN) [Suspect]
     Active Substance: CEFTRIAXONE
     Indication: COVID-19
     Dosage: UNK
     Route: 042

REACTIONS (2)
  - Haematoma [Recovered/Resolved]
  - Off label use [Unknown]
